FAERS Safety Report 19094839 (Version 1)
Quarter: 2021Q2

REPORT INFORMATION
  Report Type: Spontaneous
  Country: US (occurrence: US)
  Receive Date: 20210405
  Receipt Date: 20210405
  Transmission Date: 20210717
  Serious: Yes (Other)
  Sender: FDA-Public Use
  Company Number: US-ANIPHARMA-2021-US-005778

PATIENT
  Age: 3 Year
  Sex: Female

DRUGS (1)
  1. CIPROFLOXACIN (NON?SPECIFIC) [Suspect]
     Active Substance: CIPROFLOXACIN
     Indication: PYELONEPHRITIS

REACTIONS (1)
  - Inappropriate antidiuretic hormone secretion [Unknown]
